FAERS Safety Report 8610102-1 (Version None)
Quarter: 2012Q3

REPORT INFORMATION
  Report Type: 
  Country: None (occurrence: None)
  Receive Date: 20120822
  Receipt Date: 20120814
  Transmission Date: 20120928
  Serious: No
  Sender: FDA-Public Use
  Company Number: US-BIOGENIDEC-2012BI021588

PATIENT
  Age: 67 Year
  Sex: Female

DRUGS (1)
  1. TYSABRI [Suspect]
     Indication: MULTIPLE SCLEROSIS
     Route: 042
     Dates: start: 20111031

REACTIONS (8)
  - URTICARIA [None]
  - LOSS OF CONTROL OF LEGS [None]
  - NAUSEA [None]
  - ABASIA [None]
  - FLUSHING [None]
  - VISION BLURRED [None]
  - BLOOD PRESSURE DECREASED [None]
  - DIZZINESS [None]
